FAERS Safety Report 5420538-8 (Version None)
Quarter: 2007Q3

REPORT INFORMATION
  Report Type: 
  Country: None (occurrence: None)
  Receive Date: 20070821
  Receipt Date: 20070405
  Transmission Date: 20080115
  Serious: No
  Sender: FDA-Public Use
  Company Number: US-KINGPHARMUSA00001-K200700426

PATIENT

DRUGS (8)
  1. CYTOMEL [Suspect]
     Indication: PROPHYLAXIS
     Dosage: 5 MCG, QD
     Route: 048
     Dates: start: 20040915, end: 20040901
  2. CYTOMEL [Suspect]
     Dosage: 10 MCG, QD
     Route: 048
     Dates: start: 20040901, end: 20060901
  3. CYTOMEL [Suspect]
     Dosage: 15 MCG, QD
     Route: 048
     Dates: start: 20060901, end: 20070201
  4. CYTOMEL [Suspect]
     Dosage: 2.5 MCG, QD
     Route: 048
     Dates: start: 20070201
  5. SYMBYAX     /01689601/ [Concomitant]
     Indication: DEPRESSION
     Dosage: 6/50, QD
     Route: 048
  6. ALPRAZOLAM [Concomitant]
     Indication: DEPRESSION
     Dosage: 1.25 MG, QD
     Route: 048
  7. LAMICTAL [Concomitant]
     Dosage: 25 MG, QD
     Route: 048
  8. PROPRANOLOL [Concomitant]
     Dosage: 25 MG, QD
     Route: 048

REACTIONS (4)
  - ALOPECIA [None]
  - DEPRESSION [None]
  - FATIGUE [None]
  - TREMOR [None]
